FAERS Safety Report 24462497 (Version 1)
Quarter: 2024Q4

REPORT INFORMATION
  Report Type: Spontaneous
  Country: PL (occurrence: PL)
  Receive Date: 20241018
  Receipt Date: 20241018
  Transmission Date: 20250115
  Serious: Yes (Hospitalization)
  Sender: RANBAXY
  Company Number: PL-SUN PHARMACEUTICAL INDUSTRIES LTD-2024RR-473799

PATIENT
  Age: 71 Year
  Sex: Male

DRUGS (13)
  1. LENALIDOMIDE [Suspect]
     Active Substance: LENALIDOMIDE
     Indication: Colorectal adenocarcinoma
     Dosage: UNK
     Route: 065
  2. IRINOTECAN [Suspect]
     Active Substance: IRINOTECAN
     Indication: Colorectal adenocarcinoma
     Dosage: 18 CYCLES
     Route: 065
     Dates: start: 202209, end: 202308
  3. IRINOTECAN [Suspect]
     Active Substance: IRINOTECAN
     Dosage: UNK
     Route: 065
     Dates: start: 202402
  4. LEUCOVORIN CALCIUM [Suspect]
     Active Substance: LEUCOVORIN CALCIUM
     Indication: Colorectal adenocarcinoma
     Dosage: 18 CYCLES
     Route: 065
     Dates: start: 202209, end: 202308
  5. LEUCOVORIN CALCIUM [Suspect]
     Active Substance: LEUCOVORIN CALCIUM
     Dosage: UNK
     Route: 065
     Dates: start: 202402
  6. DOXORUBICIN [Suspect]
     Active Substance: DOXORUBICIN
     Indication: Colorectal adenocarcinoma
     Dosage: 5 COURSES
     Route: 065
     Dates: start: 20231210
  7. PREDNISONE [Suspect]
     Active Substance: PREDNISONE
     Indication: Colorectal adenocarcinoma
     Dosage: 5 COURSES
     Route: 065
     Dates: start: 20231210
  8. VINCRISTINE [Suspect]
     Active Substance: VINCRISTINE
     Indication: Colorectal adenocarcinoma
     Dosage: 5 COURSES
     Route: 065
     Dates: start: 20231210
  9. CYCLOPHOSPHAMIDE [Suspect]
     Active Substance: CYCLOPHOSPHAMIDE
     Indication: Colorectal adenocarcinoma
     Dosage: 5 COURSES
     Route: 065
     Dates: start: 20231210
  10. CETUXIMAB [Suspect]
     Active Substance: CETUXIMAB
     Indication: Colorectal adenocarcinoma
     Dosage: 18 CYCLES
     Route: 065
     Dates: start: 202209, end: 20230818
  11. FLUOROURACIL [Suspect]
     Active Substance: FLUOROURACIL
     Indication: Colorectal adenocarcinoma
     Dosage: 18 CYCLES
     Route: 065
     Dates: start: 202209, end: 202308
  12. FLUOROURACIL [Suspect]
     Active Substance: FLUOROURACIL
     Dosage: UNK
     Route: 065
     Dates: start: 202402
  13. RITUXIMAB [Suspect]
     Active Substance: RITUXIMAB
     Indication: Colorectal adenocarcinoma
     Dosage: 5 COURSES
     Route: 065
     Dates: start: 20231210

REACTIONS (2)
  - Therapeutic product effect incomplete [Unknown]
  - Disease progression [Unknown]
